FAERS Safety Report 9525356 (Version 1)
Quarter: 2013Q3

REPORT INFORMATION
  Report Type: Spontaneous
  Country: US (occurrence: None)
  Receive Date: 20130913
  Receipt Date: 20130913
  Transmission Date: 20140515
  Serious: Yes (Hospitalization)
  Sender: FDA-Public Use
  Company Number: None

PATIENT
  Age: 60 Year
  Sex: Male
  Weight: 72 kg

DRUGS (2)
  1. METFORMIN [Suspect]
     Indication: DIABETES MELLITUS
     Dosage: 1000 MG  BID  PO
     Route: 048
     Dates: start: 20111205, end: 20130814
  2. METFORMIN [Suspect]
     Indication: BLOOD CREATININE
     Dosage: 1000 MG  BID  PO
     Route: 048
     Dates: start: 20111205, end: 20130814

REACTIONS (1)
  - Lactic acidosis [None]
